FAERS Safety Report 18849573 (Version 1)
Quarter: 2021Q1

REPORT INFORMATION
  Report Type: Spontaneous
  Country: FI (occurrence: FI)
  Receive Date: 20210205
  Receipt Date: 20210205
  Transmission Date: 20210419
  Serious: Yes (Death, Other)
  Sender: FDA-Public Use
  Company Number: FI-BRISTOL-MYERS SQUIBB COMPANY-BMS-2021-009984

PATIENT
  Age: 84 Year
  Sex: Female

DRUGS (9)
  1. ELIQUIS [Suspect]
     Active Substance: APIXABAN
     Indication: CEREBROVASCULAR ACCIDENT PROPHYLAXIS
     Dosage: 5,MG,DAILY
     Route: 048
     Dates: start: 20201022, end: 202012
  2. CARVEDILOL ORION [Concomitant]
     Indication: AORTIC ANEURYSM
     Dosage: 50,MG,DAILY
     Route: 048
  3. MEMANTINE RATIOPHARM [Concomitant]
     Active Substance: MEMANTINE
     Indication: PRODUCT USED FOR UNKNOWN INDICATION
     Dosage: 10,MG,DAILY
     Route: 048
  4. KALCIPOS?D [Concomitant]
     Active Substance: CALCIUM CARBONATE\CHOLECALCIFEROL
     Indication: PRODUCT USED FOR UNKNOWN INDICATION
     Dosage: 1,DF,DAILY
     Route: 048
  5. RAMIPRIL HEXAL [Concomitant]
     Active Substance: RAMIPRIL
     Indication: AORTIC ANEURYSM
     Dosage: 6.25,MG,DAILY
     Route: 048
  6. KALEORID [Concomitant]
     Active Substance: POTASSIUM CHLORIDE
     Indication: HYPOKALAEMIA
     Dosage: 2,G,DAILY
     Route: 048
  7. DONEPEZIL ORION [Concomitant]
     Indication: MEMORY IMPAIRMENT
     Dosage: 10,MG,DAILY
     Route: 048
  8. MIRTAZAPIN ORION [Concomitant]
     Active Substance: MIRTAZAPINE
     Indication: MEMORY IMPAIRMENT
     Dosage: 15,MG,DAILY
     Route: 048
  9. HYDREX SEMI [Concomitant]
     Indication: HYPERTENSION
     Dosage: 25,MG,DAILY
     Route: 048

REACTIONS (4)
  - Subdural haematoma [Fatal]
  - Brain midline shift [Fatal]
  - Neurological decompensation [Fatal]
  - Fall [Fatal]

NARRATIVE: CASE EVENT DATE: 20201201
